FAERS Safety Report 13436442 (Version 1)
Quarter: 2017Q2

REPORT INFORMATION
  Report Type: Spontaneous
  Country: US (occurrence: US)
  Receive Date: 20170412
  Receipt Date: 20170412
  Transmission Date: 20170830
  Serious: No
  Sender: FDA-Public Use
  Company Number: US-SA-2016SA144075

PATIENT
  Age: 57 Year
  Sex: Male

DRUGS (1)
  1. ALLEGRA [Suspect]
     Active Substance: FEXOFENADINE HYDROCHLORIDE
     Indication: HYPERSENSITIVITY
     Dosage: START DATE: LAST WEEK
     Route: 065

REACTIONS (3)
  - Nasal congestion [Unknown]
  - Throat tightness [Unknown]
  - Upper-airway cough syndrome [Unknown]
